FAERS Safety Report 25359984 (Version 1)
Quarter: 2025Q2

REPORT INFORMATION
  Report Type: Spontaneous
  Country: JP (occurrence: JP)
  Receive Date: 20250526
  Receipt Date: 20250526
  Transmission Date: 20250716
  Serious: Yes (Other)
  Sender: AMGEN
  Company Number: JP-AMGEN-JPNSP2025099224

PATIENT
  Age: 32 Year
  Sex: Female

DRUGS (6)
  1. BLINATUMOMAB [Suspect]
     Active Substance: BLINATUMOMAB
     Indication: Lymphocytic leukaemia
     Route: 065
  2. BLINATUMOMAB [Suspect]
     Active Substance: BLINATUMOMAB
     Indication: Philadelphia chromosome negative
  3. CYCLOPHOSPHAMIDE [Concomitant]
     Active Substance: CYCLOPHOSPHAMIDE
     Indication: Lymphocytic leukaemia
     Route: 065
  4. CYCLOPHOSPHAMIDE [Concomitant]
     Active Substance: CYCLOPHOSPHAMIDE
     Indication: Philadelphia chromosome negative
  5. BUSULFAN [Concomitant]
     Active Substance: BUSULFAN
     Indication: Lymphocytic leukaemia
     Route: 065
  6. BUSULFAN [Concomitant]
     Active Substance: BUSULFAN
     Indication: Philadelphia chromosome negative

REACTIONS (4)
  - Graft versus host disease in skin [Recovered/Resolved]
  - Cytokine release syndrome [Recovered/Resolved]
  - Precursor B-lymphoblastic lymphoma recurrent [Unknown]
  - Pathological fracture [Unknown]
